FAERS Safety Report 19451313 (Version 2)
Quarter: 2021Q4

REPORT INFORMATION
  Report Type: Report from Study
  Country: US (occurrence: US)
  Receive Date: 20210623
  Receipt Date: 20211210
  Transmission Date: 20220303
  Serious: No
  Sender: FDA-Public Use
  Company Number: US-NOVARTISTESTPH-NVSC2021US133070

PATIENT
  Age: 66 Year
  Sex: Male

DRUGS (4)
  1. ENTRESTO [Suspect]
     Active Substance: SACUBITRIL\VALSARTAN
     Indication: Cardiac failure
     Dosage: 97.103 MG, BID
     Route: 048
     Dates: start: 2019
  2. CARVEDILOL [Suspect]
     Active Substance: CARVEDILOL
     Indication: Cardiac failure
     Dosage: 12.5 MG, BID
     Route: 048
     Dates: start: 2019
  3. CARVEDILOL [Suspect]
     Active Substance: CARVEDILOL
     Dosage: 25 MG, BID
     Route: 065
  4. FUROSEMIDE [Suspect]
     Active Substance: FUROSEMIDE
     Indication: Cardiac failure
     Route: 065

REACTIONS (2)
  - Pollakiuria [Unknown]
  - Weight decreased [Unknown]

NARRATIVE: CASE EVENT DATE: 20210601
